FAERS Safety Report 10779135 (Version 1)
Quarter: 2015Q1

REPORT INFORMATION
  Report Type: Spontaneous
  Country: CA (occurrence: CA)
  Receive Date: 20150210
  Receipt Date: 20150210
  Transmission Date: 20150721
  Serious: Yes (Life-Threatening, Other)
  Sender: FDA-Public Use
  Company Number: CA-JNJFOC-20150201825

PATIENT
  Age: 10 Year
  Sex: Male
  Weight: 38 kg

DRUGS (1)
  1. CONCERTA [Suspect]
     Active Substance: METHYLPHENIDATE HYDROCHLORIDE
     Indication: ATTENTION DEFICIT/HYPERACTIVITY DISORDER
     Route: 048

REACTIONS (6)
  - Suicidal ideation [Unknown]
  - Affect lability [Unknown]
  - Aggression [Unknown]
  - Hostility [Unknown]
  - Crying [Unknown]
  - Anxiety [Unknown]
